FAERS Safety Report 13335706 (Version 1)
Quarter: 2017Q1

REPORT INFORMATION
  Report Type: Spontaneous
  Country: FR (occurrence: FR)
  Receive Date: 20170314
  Receipt Date: 20170314
  Transmission Date: 20170428
  Serious: Yes (Hospitalization, Other)
  Sender: FDA-Public Use
  Company Number: FR-PFIZER INC-2017105361

PATIENT
  Age: 53 Year
  Sex: Male

DRUGS (19)
  1. CISPLATINE ACCORD [Suspect]
     Active Substance: CISPLATIN
     Indication: OESOPHAGEAL ADENOCARCINOMA
     Dosage: 70 MG, CYCLIC
     Route: 042
     Dates: start: 20170202, end: 20170202
  2. EMEND [Concomitant]
     Active Substance: APREPITANT
     Dosage: 80 MG, 1X/DAY
     Route: 048
     Dates: start: 20170203, end: 20170204
  3. FLUOROURACILE ACCORD [Suspect]
     Active Substance: FLUOROURACIL
     Indication: OESOPHAGEAL ADENOCARCINOMA
     Dosage: 1750 MG, CYCLIC
     Route: 042
     Dates: start: 20170202, end: 20170203
  4. PREVISCAN /00789001/ [Concomitant]
     Active Substance: FLUINDIONE
     Dosage: UNK
     Route: 048
     Dates: end: 20170217
  5. PARACETAMOL [Concomitant]
     Active Substance: ACETAMINOPHEN
     Dosage: 1 G 4 TIMES A DAY (AS NEEDED)
     Route: 048
  6. FLUOROURACILE ACCORD [Suspect]
     Active Substance: FLUOROURACIL
     Dosage: 700 MG, SINGLE
     Route: 042
     Dates: start: 20170202, end: 20170202
  7. GRANOCYTE [Concomitant]
     Active Substance: LENOGRASTIM
     Dosage: 34 MILLION IU, 1X/DAY
     Route: 058
     Dates: start: 20170206, end: 20170210
  8. PRIMPERAN [Concomitant]
     Active Substance: METOCLOPRAMIDE HYDROCHLORIDE
     Dosage: 10 MG, 3X/DAY
     Route: 048
     Dates: start: 20170202
  9. FORLAX [Concomitant]
     Active Substance: POLYETHYLENE GLYCOL 4000
     Dosage: UP TO 1 SACHET DOSE, 3X/DAY
  10. LANSOYL [Concomitant]
     Active Substance: MINERAL OIL
     Dosage: UNK UNK, AS NEEDED
  11. EMEND [Concomitant]
     Active Substance: APREPITANT
     Dosage: 125 MG, SINGLE
     Route: 048
     Dates: start: 20170202, end: 20170202
  12. FUNGIZONE [Concomitant]
     Active Substance: AMPHOTERICIN B
     Indication: ORAL CANDIDIASIS
  13. DOCETAXEL HOSPIRA [Suspect]
     Active Substance: DOCETAXEL
     Indication: OESOPHAGEAL ADENOCARCINOMA
     Dosage: 70 MG, CYCLIC
     Route: 042
     Dates: start: 20170202, end: 20170202
  14. SODIUM BICARBONATE. [Concomitant]
     Active Substance: SODIUM BICARBONATE
     Dosage: 3-6 MOUTHWASHES A DAY, AS NEEDED
     Route: 002
     Dates: start: 20170202
  15. LEVOFOLINATE DE CALCIUM [Concomitant]
     Active Substance: LEVOLEUCOVORIN CALCIUM
     Dosage: 350 MG, SINGLE
     Route: 042
     Dates: start: 20170202, end: 20170202
  16. ALPRAZOLAM. [Concomitant]
     Active Substance: ALPRAZOLAM
     Dosage: 0.25 MG, 1X/DAY
     Route: 048
  17. ZOPHREN /00955302/ [Concomitant]
     Active Substance: ONDANSETRON
     Dosage: 8 MG, 2X/DAY
     Route: 048
     Dates: start: 20170202, end: 20170206
  18. SOLUPRED /00016201/ [Concomitant]
     Active Substance: PREDNISOLONE
     Dosage: 40 MG, 1X/DAY
     Route: 048
     Dates: start: 20170202, end: 20170207
  19. FUNGIZONE [Concomitant]
     Active Substance: AMPHOTERICIN B
     Indication: MOUTH ULCERATION
     Dosage: 3-4 MOUTHWASHES A DAY, AS NEEDED
     Route: 002
     Dates: start: 20170202

REACTIONS (7)
  - Pneumonia [Unknown]
  - Constipation [Unknown]
  - Colitis [Unknown]
  - Oesophageal candidiasis [Unknown]
  - Chills [Unknown]
  - Fatigue [Unknown]
  - Nausea [Unknown]

NARRATIVE: CASE EVENT DATE: 2017
